FAERS Safety Report 8518537-2 (Version None)
Quarter: 2012Q3

REPORT INFORMATION
  Report Type: 
  Country: None (occurrence: None)
  Receive Date: 20120718
  Receipt Date: 20120502
  Transmission Date: 20120928
  Serious: No
  Sender: FDA-Public Use
  Company Number: US-BRISTOL-MYERS SQUIBB COMPANY-16566283

PATIENT
  Age: 44 Year
  Sex: Male
  Weight: 70 kg

DRUGS (1)
  1. WARFARIN SODIUM [Suspect]
     Indication: HEART VALVE REPLACEMENT
     Dosage: 3MG ON SATURDAY AND TUESDAYS AND 6MG THE REST OF THE WEEK. STARTED 4YRS AGO

REACTIONS (4)
  - DIZZINESS [None]
  - ACNE [None]
  - INTERNATIONAL NORMALISED RATIO FLUCTUATION [None]
  - PAIN [None]
